FAERS Safety Report 15257721 (Version 3)
Quarter: 2018Q4

REPORT INFORMATION
  Report Type: Spontaneous
  Country: US (occurrence: US)
  Receive Date: 20180808
  Receipt Date: 20181001
  Transmission Date: 20190204
  Serious: Yes (Hospitalization)
  Sender: FDA-Public Use
  Company Number: US-ACTELION-A-US2018-176744

PATIENT
  Age: 9 Month
  Sex: Female
  Weight: 4.54 kg

DRUGS (3)
  1. TRACLEER [Suspect]
     Active Substance: BOSENTAN
     Dosage: 14 MG, BID
     Route: 048
     Dates: start: 201805
  2. TRACLEER [Suspect]
     Active Substance: BOSENTAN
     Indication: PULMONARY HYPERTENSION
     Dosage: 62.5 MG, BID
     Route: 048
  3. REVATIO [Concomitant]
     Active Substance: SILDENAFIL CITRATE
     Dosage: 6.2 MG, Q6HRS
     Dates: start: 201710

REACTIONS (2)
  - Hypoxia [Unknown]
  - Acute respiratory failure [Recovering/Resolving]
